FAERS Safety Report 6702320-4 (Version None)
Quarter: 2010Q2

REPORT INFORMATION
  Report Type: 
  Country: None (occurrence: None)
  Receive Date: 20100429
  Receipt Date: 20100420
  Transmission Date: 20101027
  Serious: Yes (Congenital Anomaly, Other)
  Sender: FDA-Public Use
  Company Number: IE-GILEAD-2010-0028682

PATIENT
  Sex: Female
  Weight: 2.74 kg

DRUGS (3)
  1. TRUVADA [Suspect]
     Indication: HIV INFECTION
     Route: 064
     Dates: start: 20090410
  2. REYATAZ [Concomitant]
     Route: 064
     Dates: start: 20090410
  3. NORVIR [Concomitant]
     Route: 064
     Dates: start: 20090410

REACTIONS (3)
  - DRUG WITHDRAWAL SYNDROME [None]
  - HEPATITIS C [None]
  - HIV INFECTION [None]
